FAERS Safety Report 5177044-8 (Version None)
Quarter: 2006Q4

REPORT INFORMATION
  Report Type: 
  Country: None (occurrence: None)
  Receive Date: 20061218
  Receipt Date: 20061129
  Transmission Date: 20070319
  Serious: Yes (Death, Life-Threatening)
  Sender: FDA-Public Use
  Company Number: JP-JPN-A200605094

PATIENT
  Age: 61 Year
  Sex: Male
  Weight: 68 kg

DRUGS (7)
  1. ZANTAC [Suspect]
     Indication: GASTRIC ULCER
     Dosage: 75MG TWICE PER DAY
     Route: 048
     Dates: start: 20030529, end: 20061124
  2. DEPAS [Suspect]
     Indication: DYSTHYMIC DISORDER
     Route: 048
     Dates: start: 20010804, end: 20061124
  3. MEVALOTIN [Suspect]
     Dosage: 10MG PER DAY
     Route: 048
     Dates: start: 20060309, end: 20061124
  4. NORVASC [Suspect]
     Indication: HYPERTENSION
     Dosage: 5MG TWICE PER DAY
     Route: 048
     Dates: start: 20020119
  5. OLMETEC [Suspect]
     Indication: HYPERTENSION
     Dosage: 20MG TWICE PER DAY
     Route: 048
     Dates: start: 20040807, end: 20061124
  6. MINOPEN [Concomitant]
     Route: 065
  7. MEROPEN [Concomitant]
     Route: 042

REACTIONS (3)
  - ACUTE RESPIRATORY DISTRESS SYNDROME [None]
  - DYSPNOEA [None]
  - INTERSTITIAL LUNG DISEASE [None]
